FAERS Safety Report 18905038 (Version 3)
Quarter: 2021Q1

REPORT INFORMATION
  Report Type: Report from Study
  Country: US (occurrence: US)
  Receive Date: 20210217
  Receipt Date: 20210301
  Transmission Date: 20210420
  Serious: No
  Sender: FDA-Public Use
  Company Number: NVSC2020US349005

PATIENT
  Sex: Male

DRUGS (1)
  1. ENTRESTO [Suspect]
     Active Substance: SACUBITRIL\VALSARTAN
     Indication: CARDIAC FAILURE
     Dosage: UNK, BID (DOSE:49/51)
     Route: 048
     Dates: start: 201910

REACTIONS (11)
  - Chest discomfort [Unknown]
  - Dizziness [Unknown]
  - Dyspnoea [Unknown]
  - Chest pain [Unknown]
  - Blood potassium decreased [Unknown]
  - Cough [Unknown]
  - Throat irritation [Unknown]
  - Eczema [Unknown]
  - Sinus disorder [Unknown]
  - Weight increased [Unknown]
  - Lethargy [Unknown]
